FAERS Safety Report 9257785 (Version 4)
Quarter: 2013Q4

REPORT INFORMATION
  Report Type: Spontaneous
  Country: US (occurrence: US)
  Receive Date: 20130426
  Receipt Date: 20131022
  Transmission Date: 20140711
  Serious: Yes (Hospitalization, Other)
  Sender: FDA-Public Use
  Company Number: US-UCBSA-084083

PATIENT
  Age: 47 Year
  Sex: Male
  Weight: 76.2 kg

DRUGS (20)
  1. CIMZIA [Suspect]
     Indication: CROHN^S DISEASE
     Route: 058
  2. CIMZIA [Suspect]
     Indication: CROHN^S DISEASE
     Dosage: FROM 07-JUN-2012-LOT NO. 94254 AND EXP. DT-??/NOV-2015.
     Dates: start: 200807
  3. PHENERGAN [Concomitant]
     Dosage: 25 MG; EVERY 4 HOURS AS NEEDED
     Route: 048
  4. LORTAB [Concomitant]
     Dosage: 10/500 ; ONE BY MOUTH 2 TIMES A DAY AS NEEDED
     Route: 048
  5. PREDNISONE [Concomitant]
     Indication: CROHN^S DISEASE
     Dates: start: 2005
  6. PREDNISONE [Concomitant]
     Indication: CROHN^S DISEASE
     Dosage: 40 MG DAILY
     Route: 048
     Dates: start: 20130415, end: 20130420
  7. PREDNISONE [Concomitant]
     Indication: CROHN^S DISEASE
     Dosage: 30 MG DAILY
     Route: 048
     Dates: start: 20130421, end: 20130424
  8. PREDNISONE [Concomitant]
     Indication: CROHN^S DISEASE
     Dosage: 20 MG DAILY
     Route: 048
     Dates: start: 20130427, end: 201304
  9. PREDNISONE [Concomitant]
     Indication: CROHN^S DISEASE
     Dosage: AS DIRECTED
     Route: 048
  10. PERCOCET [Concomitant]
     Indication: PAIN
     Dosage: 10/650 MG; 1/2 QID; PRN
     Route: 048
     Dates: start: 20130318
  11. CYANOCOBOLAMIN [Concomitant]
     Dosage: 100 MCG/ML ; 1CC WEEKLY 4; THEN ONCE/MONTH
     Route: 030
  12. ZOLOFT [Concomitant]
     Route: 048
  13. CIPRO [Concomitant]
     Route: 048
  14. HUMIRA [Concomitant]
     Dosage: 40 MG/0.8 ML
     Dates: end: 201310
  15. VITAMIN C WITH ROSE HIPS [Concomitant]
     Dosage: 500 MG EVERY DAY
  16. VITAMIN B COMPLEX [Concomitant]
     Dosage: OTC; EVERY DAY
  17. POTASSIUM [Concomitant]
     Dosage: OTC
     Route: 048
  18. IRON [Concomitant]
     Dosage: 1 EVERY DAY
     Route: 048
  19. CALCIUM+D [Concomitant]
     Dosage: 600 MG; EVERY DAY
  20. MVI [Concomitant]
     Dosage: UNKNOWN DOSE

REACTIONS (17)
  - Dehydration [Recovering/Resolving]
  - Gastrointestinal infection [Unknown]
  - Grand mal convulsion [Unknown]
  - Anal fistula [Unknown]
  - Crohn^s disease [Not Recovered/Not Resolved]
  - Drug ineffective [Unknown]
  - Abdominal pain [Unknown]
  - Groin pain [Unknown]
  - Testicular pain [Unknown]
  - Diarrhoea [Unknown]
  - Abscess [Unknown]
  - Pyrexia [Unknown]
  - Cough [Unknown]
  - Nausea [Unknown]
  - Vomiting [Unknown]
  - Feeling abnormal [Unknown]
  - Influenza [Unknown]
